FAERS Safety Report 13053250 (Version 1)
Quarter: 2016Q4

REPORT INFORMATION
  Report Type: Spontaneous
  Country: AU (occurrence: AU)
  Receive Date: 20161222
  Receipt Date: 20161222
  Transmission Date: 20170207
  Serious: Yes (Other)
  Sender: FDA-Public Use
  Company Number: AU-ROCHE-1870218

PATIENT
  Age: 66 Year
  Sex: Female
  Weight: 65 kg

DRUGS (9)
  1. NEXIUM [Concomitant]
     Active Substance: ESOMEPRAZOLE MAGNESIUM
     Dosage: 20MG TABLET 1 BEFORE BED
     Route: 065
  2. ENDEP [Concomitant]
     Active Substance: AMITRIPTYLINE HYDROCHLORIDE
     Dosage: 10MG TABLET 1 BEFORE BED
     Route: 065
  3. TAMIFLU [Suspect]
     Active Substance: OSELTAMIVIR PHOSPHATE
     Indication: PRODUCT USED FOR UNKNOWN INDICATION
     Dosage: 1 DOSE UNSPEC DAILY
     Route: 065
     Dates: start: 20160824
  4. NOTEN [Concomitant]
     Active Substance: ATENOLOL
     Dosage: 50MG TABLET 1 BEFORE BED
     Route: 065
  5. ALPRAX [Concomitant]
     Dosage: 0.5MG TABLET 1/2 BEFORE BED
     Route: 065
  6. SIMVAR [Concomitant]
     Dosage: 20MG TABLET 1 BEFORE BED
     Route: 065
  7. TAMIFLU [Suspect]
     Active Substance: OSELTAMIVIR PHOSPHATE
     Route: 065
  8. MOBIC [Concomitant]
     Active Substance: MELOXICAM
     Dosage: 15MG TABLET 1 BEFORE BED AFTER MEALS
     Route: 065
  9. PREMARIN [Concomitant]
     Active Substance: ESTROGENS, CONJUGATED
     Dosage: 0.3MG TABLET 1 AS DIRECTED
     Route: 065

REACTIONS (2)
  - Excoriation [Recovering/Resolving]
  - Rash [Recovering/Resolving]

NARRATIVE: CASE EVENT DATE: 20160824
